FAERS Safety Report 24803002 (Version 1)
Quarter: 2025Q1

REPORT INFORMATION
  Report Type: Spontaneous
  Country: DE (occurrence: DE)
  Receive Date: 20250103
  Receipt Date: 20250103
  Transmission Date: 20250408
  Serious: Yes (Hospitalization, Other)
  Sender: AUROBINDO
  Company Number: DE-ASTRAZENECA-202411EEA018488DE

PATIENT
  Sex: Female

DRUGS (19)
  1. ANASTROZOLE [Suspect]
     Active Substance: ANASTROZOLE
     Indication: Breast cancer
     Dosage: 1 MILLIGRAM, ONCE A DAY
     Route: 048
     Dates: start: 20220916
  2. LYNPARZA [Suspect]
     Active Substance: OLAPARIB
     Indication: Product use in unapproved indication
     Route: 048
  3. PALBOCICLIB [Suspect]
     Active Substance: PALBOCICLIB
     Indication: Product use in unapproved indication
     Route: 048
     Dates: start: 20220926
  4. SIMVASTATIN [Suspect]
     Active Substance: SIMVASTATIN
     Indication: Product use in unapproved indication
     Route: 065
     Dates: start: 20240813
  5. TALZENNA [Suspect]
     Active Substance: TALAZOPARIB TOSYLATE
     Indication: Bone cancer metastatic
     Route: 048
     Dates: start: 20240717
  6. CHOLECALCIFEROL [Concomitant]
     Active Substance: CHOLECALCIFEROL
     Indication: Product use in unapproved indication
     Route: 065
  7. CITALOPRAM [Concomitant]
     Active Substance: CITALOPRAM
     Indication: Product use in unapproved indication
     Route: 065
  8. APO HYDROMORPHONE CR [Concomitant]
     Indication: Product use in unapproved indication
     Route: 065
     Dates: start: 2022
  9. Pregabalin alphapharm [Concomitant]
     Indication: Product use in unapproved indication
     Route: 065
     Dates: start: 2022
  10. XGEVA [Concomitant]
     Active Substance: DENOSUMAB
     Indication: Product use in unapproved indication
     Route: 065
     Dates: start: 20220916
  11. Novalgin [Concomitant]
     Indication: Product use in unapproved indication
     Route: 065
     Dates: start: 20221019
  12. NORSPAN [Concomitant]
     Active Substance: BUPRENORPHINE
     Indication: Product use in unapproved indication
     Route: 065
     Dates: start: 20221021
  13. CELEBREX [Concomitant]
     Active Substance: CELECOXIB
     Indication: Product use in unapproved indication
     Route: 065
     Dates: start: 202210
  14. FOLIC ACID [Concomitant]
     Active Substance: FOLIC ACID
     Indication: Product use in unapproved indication
     Route: 065
  15. PANTOZOL [Concomitant]
     Active Substance: PANTOPRAZOLE SODIUM
     Indication: Product use in unapproved indication
     Route: 065
     Dates: start: 202210
  16. XARELTO [Concomitant]
     Active Substance: RIVAROXABAN
     Indication: Product use in unapproved indication
     Route: 065
     Dates: start: 202210
  17. LOPERAMIDE [Concomitant]
     Active Substance: LOPERAMIDE
     Indication: Product use in unapproved indication
     Route: 065
     Dates: start: 20231006
  18. OXYBUTYNIN [Concomitant]
     Active Substance: OXYBUTYNIN
     Indication: Product use in unapproved indication
     Route: 065
     Dates: start: 20240713
  19. MCP [Concomitant]
     Active Substance: METOCLOPRAMIDE HYDROCHLORIDE
     Indication: Product use in unapproved indication
     Route: 065
     Dates: start: 20240813

REACTIONS (3)
  - Anaemia [Unknown]
  - Metastases to bone [Unknown]
  - Malignant neoplasm progression [Unknown]
